FAERS Safety Report 7584828-5 (Version None)
Quarter: 2011Q2

REPORT INFORMATION
  Report Type: 
  Country: None (occurrence: None)
  Receive Date: 20110630
  Receipt Date: 20110628
  Transmission Date: 20111010
  Serious: Yes (Death)
  Sender: FDA-Public Use
  Company Number: PHFR2011GB03780

PATIENT
  Sex: Male

DRUGS (6)
  1. CLOZAPINE [Suspect]
     Dosage: 350 MG/DAY
     Route: 048
     Dates: start: 20100208
  2. DIAZEPAM [Concomitant]
     Dosage: 1 MG/DAY
     Route: 048
  3. CLOZAPINE [Suspect]
     Indication: SCHIZOPHRENIA
     Dosage: 350 MG/DAY
     Route: 048
     Dates: start: 20100101
  4. HALOPERIDOL [Concomitant]
     Dosage: 2 MG/DAY
     Route: 048
  5. VALPROATE SODIUM [Concomitant]
     Dosage: 600 MG, BID
     Route: 048
  6. ATROPINE [Concomitant]
     Dosage: 1 DROP
     Route: 048

REACTIONS (1)
  - COMPLETED SUICIDE [None]
